FAERS Safety Report 10078353 (Version 4)
Quarter: 2014Q2

REPORT INFORMATION
  Report Type: Spontaneous
  Country: HU (occurrence: HU)
  Receive Date: 20140415
  Receipt Date: 20140617
  Transmission Date: 20141212
  Serious: Yes (Death)
  Sender: FDA-Public Use
  Company Number: HU-ROCHE-1376789

PATIENT
  Age: 17 Year
  Sex: Male
  Weight: 105 kg

DRUGS (15)
  1. GAZYVA [Suspect]
     Indication: DIFFUSE LARGE B-CELL LYMPHOMA
     Route: 042
     Dates: start: 20140314, end: 20140314
  2. GAZYVA [Suspect]
     Route: 041
     Dates: start: 20140315, end: 20140315
  3. CYCLOPHOSPHAMIDE [Suspect]
     Indication: PRODUCT USED FOR UNKNOWN INDICATION
     Route: 065
     Dates: start: 2013
  4. CYCLOPHOSPHAMIDE [Suspect]
     Indication: DIFFUSE LARGE B-CELL LYMPHOMA
     Dosage: TAKEN PREVIOUSLY AS R-CHOP.
     Route: 065
  5. DOXORUBICIN [Suspect]
     Indication: PRODUCT USED FOR UNKNOWN INDICATION
     Route: 065
     Dates: start: 2013
  6. DOXORUBICIN [Suspect]
     Indication: DIFFUSE LARGE B-CELL LYMPHOMA
     Dosage: TAKEN PREVIOUSLY AS R-CHOP.
     Route: 065
  7. VINCRISTINE [Suspect]
     Indication: PRODUCT USED FOR UNKNOWN INDICATION
     Route: 065
     Dates: start: 2013
  8. VINCRISTINE [Suspect]
     Indication: DIFFUSE LARGE B-CELL LYMPHOMA
     Dosage: TAKEN PREVIOUSLY AS R-CHOP.
     Route: 065
  9. PREDNISOLONE [Suspect]
     Indication: PRODUCT USED FOR UNKNOWN INDICATION
     Route: 065
     Dates: start: 2013
  10. PREDNISOLONE [Suspect]
     Indication: DIFFUSE LARGE B-CELL LYMPHOMA
     Dosage: TAKEN PREVIOUSLY AS R-CHOP.
     Route: 065
  11. CLEXANE [Suspect]
     Indication: PROPHYLAXIS
     Route: 058
     Dates: start: 20140310, end: 20140324
  12. VANCOMYCIN [Concomitant]
     Indication: INFECTION
     Route: 042
     Dates: start: 20140310, end: 20140324
  13. MEROPENEM [Concomitant]
     Indication: INFECTION
     Route: 042
     Dates: start: 20140310, end: 20140324
  14. SILYMARIN [Concomitant]
     Indication: LIVER DISORDER
     Route: 048
     Dates: start: 20140310, end: 20140324
  15. URSOFALK [Concomitant]
     Indication: LIVER DISORDER
     Route: 048
     Dates: start: 20140310, end: 20140324

REACTIONS (2)
  - Tumour lysis syndrome [Fatal]
  - Off label use [Unknown]
